FAERS Safety Report 6379324-7 (Version None)
Quarter: 2009Q3

REPORT INFORMATION
  Report Type: 
  Country: None (occurrence: None)
  Receive Date: 20090928
  Receipt Date: 20090916
  Transmission Date: 20100115
  Serious: Yes (Hospitalization)
  Sender: FDA-Public Use
  Company Number: FR-ELI_LILLY_AND_COMPANY-FR200904004786

PATIENT
  Age: 80 Year
  Sex: Male

DRUGS (5)
  1. ALIMTA [Suspect]
     Indication: PLEURAL MESOTHELIOMA MALIGNANT
     Dosage: 500 MG/M2, EVERY THREE WEEKS
     Route: 042
     Dates: start: 20070601
  2. ALIMTA [Suspect]
     Dosage: 500 MG/M2, OTHER
     Route: 042
  3. VITAMIN B-12 [Concomitant]
     Dates: start: 20070601
  4. FOLIC ACID [Concomitant]
     Dates: start: 20070601
  5. CARBOPLATIN [Concomitant]
     Indication: PLEURAL MESOTHELIOMA MALIGNANT
     Dates: start: 20070601

REACTIONS (4)
  - FATIGUE [None]
  - HAEMOPTYSIS [None]
  - NEUTROPENIA [None]
  - THROMBOCYTOPENIA [None]
